FAERS Safety Report 5476847-X (Version None)
Quarter: 2007Q4

REPORT INFORMATION
  Report Type: 
  Country: None (occurrence: None)
  Receive Date: 20071003
  Receipt Date: 20071003
  Transmission Date: 20080405
  Serious: Yes (Other)
  Sender: FDA-Public Use
  Company Number: None

PATIENT
  Sex: Female
  Weight: 76.2 kg

DRUGS (1)
  1. FUROSEMIDE [Suspect]
     Dosage: 20MG X 1 IV
     Route: 042
     Dates: start: 20070928

REACTIONS (2)
  - ABDOMINAL PAIN [None]
  - BACK PAIN [None]
